FAERS Safety Report 5128259-6 (Version None)
Quarter: 2006Q4

REPORT INFORMATION
  Report Type: 
  Country: None (occurrence: None)
  Receive Date: 20061011
  Receipt Date: 20061006
  Transmission Date: 20070319
  Serious: Yes (Other)
  Sender: FDA-Public Use
  Company Number: S06-CAN-04090-01

PATIENT
  Age: 84 Year
  Sex: Female

DRUGS (7)
  1. EBIXA (MEMANTINE) [Suspect]
     Indication: DEMENTIA ALZHEIMER'S TYPE
     Dosage: 10 MG BID PO
     Route: 048
     Dates: start: 20051116, end: 20060302
  2. ARICEPT [Concomitant]
  3. RISPERIDONE [Concomitant]
  4. FLONASE [Concomitant]
  5. ASPIRIN [Concomitant]
  6. ACETAMINOPHEN [Concomitant]
  7. LORAZEPAM [Concomitant]

REACTIONS (3)
  - CONVULSION [None]
  - DROOLING [None]
  - MUSCULOSKELETAL STIFFNESS [None]
